FAERS Safety Report 10437358 (Version 3)
Quarter: 2014Q4

REPORT INFORMATION
  Report Type: Spontaneous
  Country: US (occurrence: US)
  Receive Date: 20140908
  Receipt Date: 20141023
  Transmission Date: 20150528
  Serious: Yes (Other)
  Sender: FDA-Public Use
  Company Number: US-JNJFOC-20140901602

PATIENT
  Sex: Female

DRUGS (13)
  1. DURAGESIC [Suspect]
     Active Substance: FENTANYL
     Indication: CERVICAL VERTEBRAL FRACTURE
     Route: 062
  2. DURAGESIC [Suspect]
     Active Substance: FENTANYL
     Indication: CERVICAL VERTEBRAL FRACTURE
     Route: 062
  3. DURAGESIC [Suspect]
     Active Substance: FENTANYL
     Indication: CERVICAL VERTEBRAL FRACTURE
     Route: 062
  4. DURAGESIC [Suspect]
     Active Substance: FENTANYL
     Indication: SPINAL PAIN
     Route: 062
  5. DURAGESIC [Suspect]
     Active Substance: FENTANYL
     Indication: CERVICAL VERTEBRAL FRACTURE
     Route: 062
  6. DURAGESIC [Suspect]
     Active Substance: FENTANYL
     Indication: SPINAL PAIN
     Route: 062
  7. DURAGESIC [Suspect]
     Active Substance: FENTANYL
     Indication: SPINAL PAIN
     Route: 062
  8. FENTANYL TRANSDERMAL SYSTEM [Suspect]
     Active Substance: FENTANYL
     Indication: PRODUCT USED FOR UNKNOWN INDICATION
     Route: 062
  9. DURAGESIC [Suspect]
     Active Substance: FENTANYL
     Indication: CERVICAL VERTEBRAL FRACTURE
     Route: 062
  10. DURAGESIC [Suspect]
     Active Substance: FENTANYL
     Indication: SPINAL PAIN
     Route: 062
  11. DURAGESIC [Suspect]
     Active Substance: FENTANYL
     Indication: SPINAL PAIN
     Route: 062
  12. DURAGESIC [Suspect]
     Active Substance: FENTANYL
     Indication: CERVICAL VERTEBRAL FRACTURE
     Route: 062
  13. DURAGESIC [Suspect]
     Active Substance: FENTANYL
     Indication: SPINAL PAIN
     Route: 062

REACTIONS (8)
  - Wrong technique in drug usage process [Not Recovered/Not Resolved]
  - Product adhesion issue [Unknown]
  - Pain [Unknown]
  - Arthritis [Not Recovered/Not Resolved]
  - Product quality issue [Unknown]
  - Withdrawal syndrome [Not Recovered/Not Resolved]
  - Kyphosis [Unknown]
  - Drug intolerance [Unknown]

NARRATIVE: CASE EVENT DATE: 20140828
